FAERS Safety Report 8052385-5 (Version None)
Quarter: 2012Q1

REPORT INFORMATION
  Report Type: 
  Country: None (occurrence: None)
  Receive Date: 20120118
  Receipt Date: 20120105
  Transmission Date: 20120608
  Serious: Yes (Other)
  Sender: FDA-Public Use
  Company Number: US-ELI_LILLY_AND_COMPANY-US201201001918

PATIENT
  Age: 82 Year
  Sex: Male

DRUGS (5)
  1. LISINOPRIL [Concomitant]
     Dosage: 10 MG, QD
  2. CYMBALTA [Suspect]
     Dosage: 60 MG, QD
  3. CYMBALTA [Suspect]
     Dosage: 30 MG, QD
  4. CYMBALTA [Suspect]
     Indication: DEPRESSION
     Dosage: 30 MG, QD
  5. LISINOPRIL [Concomitant]
     Dosage: 10 MG, BID

REACTIONS (8)
  - DECREASED APPETITE [None]
  - HEART RATE INCREASED [None]
  - DIZZINESS [None]
  - WEIGHT DECREASED [None]
  - DRUG WITHDRAWAL SYNDROME [None]
  - MALIGNANT HYPERTENSION [None]
  - HYPOTENSION [None]
  - COORDINATION ABNORMAL [None]
